FAERS Safety Report 10270263 (Version 1)
Quarter: 2014Q2

REPORT INFORMATION
  Report Type: Spontaneous
  Country: GB (occurrence: None)
  Receive Date: 20140627
  Receipt Date: 20140627
  Transmission Date: 20141212
  Serious: Yes (Hospitalization)
  Sender: FDA-Public Use
  Company Number: AUR-APL-2014-06698

PATIENT
  Age: 55 Year
  Sex: Female

DRUGS (5)
  1. LAMOTRIGINE (LAMOTRIGINE) [Suspect]
     Indication: EPILEPSY
     Route: 048
     Dates: start: 20140502, end: 20140604
  2. CLOBAZAM (CLOBAZAM) [Concomitant]
  3. COLECALCIFEROL (COLECALCIFEROL) [Concomitant]
  4. LEVETIRACETAM (LEVETIRACETAM) [Concomitant]
  5. LEVOTHYROXINE (LEVOTHYROXINE) [Concomitant]

REACTIONS (3)
  - Blister [None]
  - Rash generalised [None]
  - Stevens-Johnson syndrome [None]
